FAERS Safety Report 13041713 (Version 1)
Quarter: 2016Q4

REPORT INFORMATION
  Report Type: Spontaneous
  Country: US (occurrence: US)
  Receive Date: 20161219
  Receipt Date: 20161219
  Transmission Date: 20170207
  Serious: No
  Sender: FDA-Public Use
  Company Number: US-ROCHE-1438363

PATIENT
  Sex: Female

DRUGS (1)
  1. ZELBORAF [Suspect]
     Active Substance: VEMURAFENIB
     Indication: CHRONIC KIDNEY DISEASE
     Route: 048
     Dates: start: 20130228, end: 20140710

REACTIONS (1)
  - Drug ineffective [Unknown]
